FAERS Safety Report 20687984 (Version 3)
Quarter: 2022Q2

REPORT INFORMATION
  Report Type: Spontaneous
  Country: FR (occurrence: FR)
  Receive Date: 20220408
  Receipt Date: 20220616
  Transmission Date: 20220721
  Serious: Yes (Other)
  Sender: FDA-Public Use
  Company Number: FR-SANOFI-01044820

PATIENT
  Age: 41 Year
  Sex: Female

DRUGS (3)
  1. AUBAGIO [Suspect]
     Active Substance: TERIFLUNOMIDE
     Indication: Multiple sclerosis
     Dosage: UNK
     Route: 065
  2. LYRICA [Suspect]
     Active Substance: PREGABALIN
     Indication: Pain
  3. QUESTRAN [Concomitant]
     Active Substance: CHOLESTYRAMINE

REACTIONS (3)
  - Hepatic cytolysis [Unknown]
  - Alanine aminotransferase abnormal [Unknown]
  - Anxiety [Unknown]
